FAERS Safety Report 22336981 (Version 1)
Quarter: 2023Q2

REPORT INFORMATION
  Report Type: Spontaneous
  Country: US (occurrence: None)
  Receive Date: 20230517
  Receipt Date: 20230517
  Transmission Date: 20230721
  Serious: Yes (Other)
  Sender: FDA-Public Use
  Company Number: None

PATIENT
  Age: 44 Year
  Sex: Female

DRUGS (1)
  1. EMGALITY [Suspect]
     Active Substance: GALCANEZUMAB-GNLM
     Indication: Migraine
     Dates: start: 20201223, end: 20230414

REACTIONS (4)
  - Temperature intolerance [None]
  - Hyperacusis [None]
  - Photosensitivity reaction [None]
  - Migraine [None]

NARRATIVE: CASE EVENT DATE: 20210414
